FAERS Safety Report 16625559 (Version 3)
Quarter: 2019Q4

REPORT INFORMATION
  Report Type: Spontaneous
  Country: US (occurrence: US)
  Receive Date: 20190724
  Receipt Date: 20191126
  Transmission Date: 20200122
  Serious: No
  Sender: FDA-Public Use
  Company Number: US-009507513-1906USA011255

PATIENT
  Sex: Male

DRUGS (3)
  1. REBETOL [Suspect]
     Active Substance: RIBAVIRIN
     Indication: RESPIRATORY SYNCYTIAL VIRUS INFECTION
     Dosage: 400 TO 600 MG EITHER TWICE PER DAY OR 3 TIMES PER DAY, FOR 7 TO 10 DAYS
     Route: 048
  2. REBETOL [Suspect]
     Active Substance: RIBAVIRIN
     Indication: PARAINFLUENZAE VIRUS INFECTION
  3. REBETOL [Suspect]
     Active Substance: RIBAVIRIN
     Indication: METAPNEUMOVIRUS INFECTION

REACTIONS (2)
  - No adverse event [Unknown]
  - Off label use [Unknown]
